FAERS Safety Report 7602260-2 (Version None)
Quarter: 2011Q3

REPORT INFORMATION
  Report Type: 
  Country: None (occurrence: None)
  Receive Date: 20110711
  Receipt Date: 20110630
  Transmission Date: 20111222
  Serious: Yes (Hospitalization)
  Sender: FDA-Public Use
  Company Number: US-ASTRAZENECA-2011SE39348

PATIENT
  Age: 66 Year
  Sex: Male

DRUGS (2)
  1. SIMVASTATIN [Concomitant]
  2. CRESTOR [Suspect]
     Route: 048
     Dates: start: 20110224

REACTIONS (2)
  - MYALGIA [None]
  - GENERALISED OEDEMA [None]
